FAERS Safety Report 7797737-3 (Version None)
Quarter: 2011Q4

REPORT INFORMATION
  Report Type: 
  Country: None (occurrence: None)
  Receive Date: 20111005
  Receipt Date: 20110929
  Transmission Date: 20120403
  Serious: Yes (Other)
  Sender: FDA-Public Use
  Company Number: PHHY2011US55530

PATIENT
  Sex: Female

DRUGS (13)
  1. VICODIN [Concomitant]
  2. PRIMAL DEFENSE [Concomitant]
  3. FEMARA [Concomitant]
     Dosage: ONCE A DAY FOR 5 YEARS
  4. OXYCODONE HCL [Concomitant]
     Indication: BACK PAIN
  5. RECLAST [Suspect]
     Dosage: 5 MG, UNK
     Route: 042
     Dates: start: 20110420
  6. CALCIUM CARBONATE [Concomitant]
  7. RECLAST [Suspect]
     Indication: OSTEOPOROSIS
     Dosage: 5 MG, UNK
     Route: 042
     Dates: start: 20081230
  8. FISH OIL [Concomitant]
  9. ACKERBERY [Concomitant]
  10. LIPITOR [Concomitant]
  11. PREVACID [Concomitant]
  12. VOLTAREN [Concomitant]
  13. AMOXICILLIN [Concomitant]
     Dosage: 1 WEEK

REACTIONS (5)
  - ORAL INFECTION [None]
  - TOOTH INFECTION [None]
  - BACK DISORDER [None]
  - CATARACT [None]
  - ARTHROPATHY [None]
